FAERS Safety Report 10687392 (Version 1)
Quarter: 2014Q4

REPORT INFORMATION
  Report Type: Spontaneous
  Country: US (occurrence: None)
  Receive Date: 20141231
  Receipt Date: 20141231
  Transmission Date: 20150529
  Serious: Yes (Other)
  Sender: FDA-Public Use
  Company Number: None

PATIENT
  Age: 57 Year
  Sex: Female
  Weight: 77.57 kg

DRUGS (1)
  1. ONABOTULINUMTOXIN A [Suspect]
     Active Substance: ONABOTULINUMTOXINA
     Indication: MIGRAINE WITH AURA
     Dosage: 155UNITS, FIRST BOTOX, CORRUGATOR, PROCEDURES FRONTALIS, TRAPEQIUS TEMPORALIS, OCCIPITALIS CERVICAL
     Dates: start: 20141105

REACTIONS (4)
  - Swelling face [None]
  - Injection site swelling [None]
  - Injection site pruritus [None]
  - Pruritus [None]

NARRATIVE: CASE EVENT DATE: 200811
